FAERS Safety Report 5905249-4 (Version None)
Quarter: 2008Q4

REPORT INFORMATION
  Report Type: 
  Country: None (occurrence: None)
  Receive Date: 20081001
  Receipt Date: 20080924
  Transmission Date: 20090506
  Serious: Yes (Other)
  Sender: FDA-Public Use
  Company Number: GB-PFIZER INC-2008076330

PATIENT
  Sex: Female
  Weight: 61 kg

DRUGS (4)
  1. DEPO-MEDRONE [Suspect]
     Indication: ARTHRALGIA
     Dates: start: 20080815
  2. DESLORATADINE [Concomitant]
     Indication: RHINITIS
     Dosage: DAILY DOSE:5MG
     Route: 048
     Dates: start: 20050510
  3. SALBUTAMOL [Concomitant]
     Indication: ASTHMA
     Route: 055
  4. BECLOMETHASONE DIPROPIONATE [Concomitant]
     Indication: ASTHMA
     Route: 055

REACTIONS (4)
  - ERYTHEMA [None]
  - HYPERSENSITIVITY [None]
  - PRURITUS [None]
  - SWELLING FACE [None]
